FAERS Safety Report 17196683 (Version 1)
Quarter: 2019Q4

REPORT INFORMATION
  Report Type: Spontaneous
  Country: SE (occurrence: SE)
  Receive Date: 20191224
  Receipt Date: 20191224
  Transmission Date: 20200122
  Serious: Yes (Hospitalization)
  Sender: FDA-Public Use
  Company Number: SE-PFIZER INC-2019549732

PATIENT
  Age: 42 Year
  Sex: Female

DRUGS (3)
  1. ALPRAZOLAM. [Suspect]
     Active Substance: ALPRAZOLAM
     Dosage: 10 DF, UNK
     Route: 048
     Dates: start: 20190315, end: 20190315
  2. NITRAZEPAM [Suspect]
     Active Substance: NITRAZEPAM
     Dosage: 12 DF, UNK
     Route: 048
     Dates: start: 20190315, end: 20190315
  3. PROPAVAN [Suspect]
     Active Substance: PROPIOMAZINE
     Dosage: 8 DF, UNK
     Route: 048
     Dates: start: 20190315, end: 20190315

REACTIONS (3)
  - Intentional overdose [Unknown]
  - Depressed level of consciousness [Unknown]
  - Intentional self-injury [Unknown]

NARRATIVE: CASE EVENT DATE: 20190315
